FAERS Safety Report 6419937-7 (Version None)
Quarter: 2009Q4

REPORT INFORMATION
  Report Type: 
  Country: None (occurrence: None)
  Receive Date: 20091029
  Receipt Date: 20091015
  Transmission Date: 20100525
  Serious: Yes (Hospitalization)
  Sender: FDA-Public Use
  Company Number: DE-ELI_LILLY_AND_COMPANY-DE200902005704

PATIENT
  Sex: Female
  Weight: 92 kg

DRUGS (2)
  1. GEMCITABINE HCL [Suspect]
     Indication: BREAST CANCER METASTATIC
     Dosage: 1250 MG/M2 (2091MG), DAY 1 AND 8 EVERY 3 WEEKS
     Route: 042
     Dates: start: 20090123
  2. PACLITAXEL [Suspect]
     Indication: BREAST CANCER METASTATIC
     Dosage: 175 MG/M2 (294MG), DAY 1 EVERY THREE WEEKS
     Route: 042
     Dates: start: 20090123

REACTIONS (5)
  - FATIGUE [None]
  - GASTRITIS [None]
  - INFECTION [None]
  - MASTITIS [None]
  - RECALL PHENOMENON [None]
